FAERS Safety Report 6736605-2 (Version None)
Quarter: 2010Q2

REPORT INFORMATION
  Report Type: 
  Country: None (occurrence: None)
  Receive Date: 20100521
  Receipt Date: 20100510
  Transmission Date: 20101027
  Serious: Yes (Hospitalization, Other)
  Sender: FDA-Public Use
  Company Number: US-ELI_LILLY_AND_COMPANY-US201004002951

PATIENT
  Sex: Female

DRUGS (1)
  1. FORTEO [Suspect]
     Indication: OSTEOPOROSIS
     Dosage: UNK, UNK
     Dates: start: 20100201

REACTIONS (5)
  - FALL [None]
  - FEMORAL ARTERY OCCLUSION [None]
  - GANGRENE [None]
  - HIP FRACTURE [None]
  - ILIAC ARTERY OCCLUSION [None]
